FAERS Safety Report 20869767 (Version 2)
Quarter: 2023Q1

REPORT INFORMATION
  Report Type: Spontaneous
  Country: FR (occurrence: FR)
  Receive Date: 20220525
  Receipt Date: 20230216
  Transmission Date: 20230418
  Serious: Yes (Hospitalization, Other)
  Sender: FDA-Public Use
  Company Number: FR-AFSSAPS-CN20220810

PATIENT
  Age: 86 Year
  Sex: Female
  Weight: 67 kg

DRUGS (1)
  1. RISEDRONATE SODIUM [Suspect]
     Active Substance: RISEDRONATE SODIUM
     Indication: Osteoporosis postmenopausal
     Dosage: 35 MILLIGRAM, EVERY WEEK
     Route: 048
     Dates: start: 202202

REACTIONS (1)
  - Cholestatic liver injury [Recovered/Resolved]

NARRATIVE: CASE EVENT DATE: 20220425
